FAERS Safety Report 6058642-6 (Version None)
Quarter: 2009Q1

REPORT INFORMATION
  Report Type: 
  Country: None (occurrence: None)
  Receive Date: 20090130
  Receipt Date: 20090120
  Transmission Date: 20090719
  Serious: Yes (Other)
  Sender: FDA-Public Use
  Company Number: JP-PFIZER INC-2009160281

PATIENT

DRUGS (2)
  1. SULPERAZON [Suspect]
     Dosage: UNK
     Route: 042
     Dates: start: 20090113, end: 20090115
  2. THEO-DUR [Suspect]
     Route: 048

REACTIONS (1)
  - LIVER DISORDER [None]
